FAERS Safety Report 19665565 (Version 1)
Quarter: 2021Q3

REPORT INFORMATION
  Report Type: Spontaneous
  Country: US (occurrence: US)
  Receive Date: 20210806
  Receipt Date: 20210806
  Transmission Date: 20211014
  Serious: No
  Sender: FDA-Public Use
  Company Number: US-ACCORD-220489

PATIENT

DRUGS (5)
  1. DOCETAXEL ACCORD [Suspect]
     Active Substance: DOCETAXEL
     Indication: CHEMOTHERAPY
     Dosage: IN 250ML NS
     Dates: start: 20190422, end: 20190624
  2. DOCETAXEL ACCORD [Suspect]
     Active Substance: DOCETAXEL
     Indication: CHEMOTHERAPY
     Dosage: IN 250ML NS
     Dates: start: 20190422, end: 20190624
  3. PARAPLATIN [Suspect]
     Active Substance: CARBOPLATIN
     Indication: BREAST CANCER
     Dosage: IN NS 250 ML
     Route: 042
  4. PARAPLATIN [Suspect]
     Active Substance: CARBOPLATIN
     Indication: BREAST CANCER
     Dosage: IN NS 250 ML
     Route: 042
     Dates: start: 20190422, end: 20190624
  5. PARAPLATIN [Suspect]
     Active Substance: CARBOPLATIN
     Indication: BREAST CANCER
     Dosage: IN NS 250 ML
     Route: 042

REACTIONS (2)
  - Dacryostenosis acquired [Unknown]
  - Nail disorder [Unknown]
